FAERS Safety Report 5918558-X (Version None)
Quarter: 2008Q4

REPORT INFORMATION
  Report Type: 
  Country: None (occurrence: None)
  Receive Date: 20081010
  Receipt Date: 20080926
  Transmission Date: 20090506
  Serious: Yes (Hospitalization)
  Sender: FDA-Public Use
  Company Number: MPS1-1000109

PATIENT
  Age: 7 Year
  Sex: Female
  Weight: 16 kg

DRUGS (1)
  1. ALDURAZYME [Suspect]
     Indication: MUCOPOLYSACCHARIDOSIS
     Dosage: INTRAVENOUS
     Route: 042
     Dates: start: 20040901

REACTIONS (5)
  - CHILLS [None]
  - HYPERSENSITIVITY [None]
  - HYPERTENSION [None]
  - PYREXIA [None]
  - TACHYCARDIA [None]
